FAERS Safety Report 7824656-6 (Version None)
Quarter: 2011Q4

REPORT INFORMATION
  Report Type: 
  Country: None (occurrence: None)
  Receive Date: 20111019
  Receipt Date: 20111006
  Transmission Date: 20120403
  Serious: Yes (Other)
  Sender: FDA-Public Use
  Company Number: PHEH2011US06122

PATIENT
  Sex: Male

DRUGS (1)
  1. AREDIA [Suspect]
     Dosage: 90 MG

REACTIONS (5)
  - CONTUSION [None]
  - CRUSH INJURY [None]
  - OEDEMA PERIPHERAL [None]
  - TENDONITIS [None]
  - PHARYNGITIS [None]
